FAERS Safety Report 15985181 (Version 4)
Quarter: 2020Q4

REPORT INFORMATION
  Report Type: Spontaneous
  Country: US (occurrence: US)
  Receive Date: 20190220
  Receipt Date: 20201215
  Transmission Date: 20210113
  Serious: Yes (Hospitalization, Other)
  Sender: FDA-Public Use
  Company Number: US-SA-2019SA045481

PATIENT

DRUGS (11)
  1. CLARITINE [Concomitant]
     Active Substance: LORATADINE
     Indication: PREMEDICATION
     Dosage: 5 MG
  2. BENADRYL [Concomitant]
     Active Substance: DIPHENHYDRAMINE HYDROCHLORIDE
     Indication: PREMEDICATION
     Dosage: 25 MG, PRN
     Route: 042
     Dates: start: 2007
  3. DIOVAN [Concomitant]
     Active Substance: VALSARTAN
     Indication: HYPERTENSION
     Dosage: 40 MG, BID
     Route: 048
  4. BREO ELLIPTA [Concomitant]
     Active Substance: FLUTICASONE FUROATE\VILANTEROL TRIFENATATE
     Indication: ASTHMA
     Dosage: PRN
     Route: 055
     Dates: start: 2018
  5. FABRAZYME [Suspect]
     Active Substance: AGALSIDASE BETA
     Indication: FABRY^S DISEASE
     Dosage: 55 MG, QOW
     Route: 041
     Dates: start: 20070629
  6. FABRAZYME [Suspect]
     Active Substance: AGALSIDASE BETA
     Dosage: 55 MG, QOW
     Route: 042
     Dates: start: 20200923, end: 2020
  7. ARMOUR THYROID [Concomitant]
     Active Substance: THYROID, PORCINE
     Indication: HYPOTHYROIDISM
     Dosage: 90 MG, QOD
     Route: 048
  8. FABRAZYME [Suspect]
     Active Substance: AGALSIDASE BETA
     Dosage: 60 MG
     Route: 041
     Dates: start: 20201030
  9. CLARITINE [Concomitant]
     Active Substance: LORATADINE
     Dosage: 10 MG
     Route: 048
     Dates: start: 20190114
  10. SINGULAIR [Concomitant]
     Active Substance: MONTELUKAST SODIUM
     Indication: HYPERSENSITIVITY
     Dosage: HS
     Route: 048
  11. QVAR [Concomitant]
     Active Substance: BECLOMETHASONE DIPROPIONATE
     Indication: ASTHMA
     Dosage: UNK
     Route: 055

REACTIONS (7)
  - Cough [Recovered/Resolved]
  - Pyrexia [Recovered/Resolved]
  - Unevaluable event [Unknown]
  - Influenza [Recovered/Resolved]
  - Appendicitis [Recovered/Resolved]
  - Incorrect dose administered [Unknown]
  - Abdominal pain [Recovered/Resolved]

NARRATIVE: CASE EVENT DATE: 20190201
